FAERS Safety Report 4352737-0 (Version None)
Quarter: 2004Q2

REPORT INFORMATION
  Report Type: 
  Country: None (occurrence: None)
  Receive Date: 20040504
  Receipt Date: 20040428
  Transmission Date: 20050107
  Serious: Yes (Hospitalization)
  Sender: FDA-Public Use
  Company Number: FR-GLAXOSMITHKLINE-B0331377A

PATIENT
  Age: 69 Year
  Sex: Male

DRUGS (11)
  1. CLAMOXYL [Suspect]
     Indication: STAPHYLOCOCCAL INFECTION
     Route: 048
     Dates: start: 20031223, end: 20040106
  2. OFLOCET [Concomitant]
     Indication: STAPHYLOCOCCAL INFECTION
     Dosage: 200MG TWICE PER DAY
     Route: 048
     Dates: start: 20031220, end: 20031223
  3. PYOSTACINE [Concomitant]
     Indication: STAPHYLOCOCCAL INFECTION
     Dosage: 2G PER DAY
     Route: 048
     Dates: start: 20031229, end: 20040112
  4. ALDACTONE [Concomitant]
     Route: 048
  5. AVLOCARDYL [Concomitant]
     Indication: PORTAL HYPERTENSION
     Route: 048
  6. INEXIUM [Concomitant]
     Route: 048
  7. DIFFU K [Concomitant]
     Route: 048
  8. DUPHALAC [Concomitant]
     Route: 048
  9. ACETAMINOPHEN [Concomitant]
     Route: 065
  10. OMEPRAZOLE [Concomitant]
     Route: 048
  11. GELOX [Concomitant]
     Route: 048

REACTIONS (1)
  - PANCYTOPENIA [None]
